FAERS Safety Report 8850315 (Version 2)
Quarter: 2013Q2

REPORT INFORMATION
  Report Type: Spontaneous
  Country: GR (occurrence: GR)
  Receive Date: 20121019
  Receipt Date: 20130422
  Transmission Date: 20140414
  Serious: Yes (Other)
  Sender: FDA-Public Use
  Company Number: PHHY2012GR092496

PATIENT
  Age: 54 Year
  Sex: Male

DRUGS (4)
  1. DOCETAXEL [Suspect]
     Indication: METASTATIC GASTRIC CANCER
     Dosage: 75 MG/M2, (120 MG IN TOTAL)
  2. XELODA [Suspect]
     Indication: METASTATIC GASTRIC CANCER
     Dosage: 6 DF, UNK
  3. CARBOPLATIN [Concomitant]
     Indication: METASTATIC GASTRIC CANCER
     Dosage: 450 MG, UNK
  4. DEXAMETHASONE [Concomitant]

REACTIONS (2)
  - Dacryostenosis acquired [Unknown]
  - Lacrimation increased [Unknown]
